FAERS Safety Report 10354682 (Version 1)
Quarter: 2014Q3

REPORT INFORMATION
  Report Type: Report from Study
  Country: CO (occurrence: CO)
  Receive Date: 20140731
  Receipt Date: 20140731
  Transmission Date: 20150326
  Serious: Yes (Other)
  Sender: FDA-Public Use
  Company Number: PHHY2014CO092516

PATIENT
  Sex: Female
  Weight: 14 kg

DRUGS (1)
  1. OMNITROPE [Suspect]
     Active Substance: SOMATROPIN
     Indication: GROWTH HORMONE DEFICIENCY
     Dosage: 4 MG, QD
     Route: 058

REACTIONS (2)
  - Neoplasm [Unknown]
  - Thyroid disorder [Unknown]
